FAERS Safety Report 7962914-5 (Version None)
Quarter: 2011Q4

REPORT INFORMATION
  Report Type: 
  Country: None (occurrence: None)
  Receive Date: 20111207
  Receipt Date: 20111205
  Transmission Date: 20120403
  Serious: Yes (Death)
  Sender: FDA-Public Use
  Company Number: US-PFIZER INC-IDA-00478

PATIENT
  Age: 51 Year
  Sex: Female

DRUGS (6)
  1. FUROSEMIDE [Suspect]
     Dosage: UNK
     Route: 048
  2. CYCLOBENZAPRINE [Suspect]
     Dosage: UNK
     Route: 048
  3. PROPRANOLOL HCL [Suspect]
     Dosage: UNK
     Route: 048
  4. OXYCODONE HCL [Suspect]
     Dosage: UNK
     Route: 048
  5. TEMAZEPAM [Suspect]
     Dosage: UNK
     Route: 048
  6. BUTALBITAL [Suspect]
     Dosage: UNK
     Route: 048

REACTIONS (2)
  - COMPLETED SUICIDE [None]
  - TOXICITY TO VARIOUS AGENTS [None]
